FAERS Safety Report 17620238 (Version 3)
Quarter: 2020Q3

REPORT INFORMATION
  Report Type: Spontaneous
  Country: US (occurrence: US)
  Receive Date: 20200403
  Receipt Date: 20200709
  Transmission Date: 20201102
  Serious: Yes (Other)
  Sender: FDA-Public Use
  Company Number: US-009507513-2004USA000072

PATIENT
  Age: 67 Year
  Sex: Female

DRUGS (1)
  1. KEYTRUDA [Suspect]
     Active Substance: PEMBROLIZUMAB
     Indication: METASTATIC MALIGNANT MELANOMA
     Dosage: 200 MG, EVERY 3 WEEKS
     Route: 042
     Dates: start: 201909, end: 20200530

REACTIONS (8)
  - Blindness unilateral [Not Recovered/Not Resolved]
  - Immune-mediated uveitis [Recovering/Resolving]
  - Scleral buckling surgery [Unknown]
  - Eye laser surgery [Unknown]
  - Choroidal detachment [Not Recovered/Not Resolved]
  - Vitrectomy [Unknown]
  - Iritis [Not Recovered/Not Resolved]
  - Intraocular pressure decreased [Not Recovered/Not Resolved]

NARRATIVE: CASE EVENT DATE: 202003
